FAERS Safety Report 4654343-7 (Version None)
Quarter: 2005Q2

REPORT INFORMATION
  Report Type: 
  Country: None (occurrence: None)
  Receive Date: 20050404
  Receipt Date: 20041201
  Transmission Date: 20051028
  Serious: No
  Sender: FDA-Public Use
  Company Number: USA041081562

PATIENT
  Age: 60 Year
  Sex: Female
  Weight: 63 kg

DRUGS (5)
  1. CYMBALTA [Suspect]
     Indication: DEPRESSION
     Dosage: 30 MG DAY
     Dates: start: 20041020
  2. CITRUCEL(METHYCELLULOSE) [Concomitant]
  3. ZONEGRAN [Concomitant]
  4. ATENOLOL [Concomitant]
  5. HYDROCODONE W/IBUPROFEN [Concomitant]

REACTIONS (8)
  - ASTHENIA [None]
  - CONSTIPATION [None]
  - DEPRESSION [None]
  - FATIGUE [None]
  - FEELING ABNORMAL [None]
  - HYPOTENSION [None]
  - NAUSEA [None]
  - SOMNOLENCE [None]
